FAERS Safety Report 4901250-8 (Version None)
Quarter: 2006Q1

REPORT INFORMATION
  Report Type: 
  Country: None (occurrence: None)
  Receive Date: 20060206
  Receipt Date: 20060125
  Transmission Date: 20060701
  Serious: Yes (Hospitalization)
  Sender: FDA-Public Use
  Company Number: US-BRISTOL-MYERS SQUIBB COMPANY-13260021

PATIENT
  Age: 42 Year
  Sex: Male

DRUGS (6)
  1. REYATAZ [Suspect]
     Indication: HIV INFECTION
  2. NORVIR [Concomitant]
  3. TRUVADA [Concomitant]
  4. BACTRIM [Concomitant]
  5. FLUCONAZOLE [Concomitant]
  6. ZITHROMAX [Concomitant]

REACTIONS (2)
  - ELECTROLYTE IMBALANCE [None]
  - SINUS ARRHYTHMIA [None]
